FAERS Safety Report 11716971 (Version 3)
Quarter: 2015Q4

REPORT INFORMATION
  Report Type: Spontaneous
  Country: US (occurrence: US)
  Receive Date: 20151104
  Receipt Date: 20151120
  Transmission Date: 20160304
  Serious: No
  Sender: FDA-Public Use
  Company Number: US-ELI_LILLY_AND_COMPANY-US201104003861

PATIENT
  Age: 78 Year
  Sex: Female

DRUGS (7)
  1. FORTEO [Suspect]
     Active Substance: TERIPARATIDE
     Indication: OSTEOPOROSIS
     Dosage: 20 UG, QD
     Route: 065
     Dates: start: 201103
  2. FORTEO [Suspect]
     Active Substance: TERIPARATIDE
     Dosage: 20 UG, QD
     Route: 065
  3. FORTEO [Suspect]
     Active Substance: TERIPARATIDE
     Dosage: 20 UG, QD
     Route: 065
  4. FORTEO [Suspect]
     Active Substance: TERIPARATIDE
     Dosage: 20 UG, OTHER
     Route: 065
     Dates: end: 201210
  5. FORTEO [Suspect]
     Active Substance: TERIPARATIDE
     Dosage: 20 UG, QD
     Route: 065
  6. FORTEO [Suspect]
     Active Substance: TERIPARATIDE
     Dosage: 20 UG, QD
     Route: 065
  7. FORTEO [Suspect]
     Active Substance: TERIPARATIDE
     Dosage: 20 UG, QD
     Route: 065

REACTIONS (24)
  - Breast cyst [Unknown]
  - Secretion discharge [Not Recovered/Not Resolved]
  - Nail disorder [Unknown]
  - Spider vein [Unknown]
  - Erythema [Unknown]
  - Discomfort [Unknown]
  - Feeling abnormal [Unknown]
  - Anxiety [Not Recovered/Not Resolved]
  - Weight decreased [Unknown]
  - Nausea [Recovered/Resolved]
  - Bone density decreased [Unknown]
  - Fear [Not Recovered/Not Resolved]
  - Pruritus [Unknown]
  - Contusion [Unknown]
  - Arthralgia [Unknown]
  - Intentional product misuse [Not Recovered/Not Resolved]
  - Osteopenia [Not Recovered/Not Resolved]
  - Intentional product misuse [Unknown]
  - Decreased appetite [Recovered/Resolved]
  - Drooling [Not Recovered/Not Resolved]
  - Fall [Unknown]
  - Malaise [Recovered/Resolved]
  - Nail growth abnormal [Unknown]
  - Scratch [Unknown]

NARRATIVE: CASE EVENT DATE: 20110703
